FAERS Safety Report 9644637 (Version 1)
Quarter: 2013Q4

REPORT INFORMATION
  Report Type: Spontaneous
  Country: BR (occurrence: BR)
  Receive Date: 20131025
  Receipt Date: 20131025
  Transmission Date: 20140711
  Serious: Yes (Other)
  Sender: FDA-Public Use
  Company Number: BR-BAYER-2013-126800

PATIENT
  Age: 31 Year
  Sex: Female
  Weight: 70 kg

DRUGS (2)
  1. YAZ (24) [Suspect]
     Indication: ENDOMETRIOSIS
     Dosage: 4 DAYS OF PILL-FREE PERIOD FOLLOWED BY 4 CONSECUTIVE PACKAGES
     Route: 048
     Dates: start: 2011, end: 201306
  2. YAZ (24) [Suspect]
     Indication: MENSTRUAL CYCLE MANAGEMENT
     Dosage: 4 DAYS OF PILL-FREE PERIOD FOLLOWED BY 4 CONSECUTIVE PACKAGES
     Route: 048
     Dates: start: 2007, end: 2010

REACTIONS (4)
  - Premature menopause [Not Recovered/Not Resolved]
  - Ovulation disorder [Not Recovered/Not Resolved]
  - Off label use [None]
  - Inappropriate schedule of drug administration [None]
